FAERS Safety Report 24161104 (Version 3)
Quarter: 2024Q3

REPORT INFORMATION
  Report Type: Spontaneous
  Country: GB (occurrence: None)
  Receive Date: 20240801
  Receipt Date: 20240919
  Transmission Date: 20241017
  Serious: Yes (Hospitalization, Other)
  Sender: ORION
  Company Number: GB-MLMSERVICE-20240722-PI139410-00218-1

PATIENT
  Age: 71 Year
  Sex: Female

DRUGS (4)
  1. METHOTREXATE [Suspect]
     Active Substance: METHOTREXATE
     Indication: Rheumatoid arthritis
  2. UPADACITINIB [Suspect]
     Active Substance: UPADACITINIB
     Indication: Rheumatoid arthritis
  3. LEFLUNOMIDE [Suspect]
     Active Substance: LEFLUNOMIDE
     Indication: Rheumatoid arthritis
  4. CORTICOSTEROID NOS [Suspect]
     Active Substance: CORTICOSTEROID NOS
     Indication: Rheumatoid arthritis
     Dosage: LONG TERM

REACTIONS (6)
  - Constipation [Recovering/Resolving]
  - Neuralgia [Recovering/Resolving]
  - Urinary retention [Recovered/Resolved]
  - Dysuria [Recovered/Resolved]
  - Herpes zoster cutaneous disseminated [Recovering/Resolving]
  - Cellulitis [Unknown]
